FAERS Safety Report 20757997 (Version 1)
Quarter: 2022Q2

REPORT INFORMATION
  Report Type: Spontaneous
  Country: US (occurrence: US)
  Receive Date: 20220427
  Receipt Date: 20220427
  Transmission Date: 20220721
  Serious: No
  Sender: FDA-Public Use
  Company Number: US-MYLANLABS-2022M1028837

PATIENT
  Age: 65 Year
  Sex: Female

DRUGS (1)
  1. WIXELA INHUB [Suspect]
     Active Substance: FLUTICASONE PROPIONATE\SALMETEROL XINAFOATE
     Indication: Asthma
     Dosage: 250/50 MICROGRAM, BID (1 PUFF IN THE MORNING AND 1 PUFF IN THE EVENING)
     Route: 055
     Dates: start: 20220413

REACTIONS (2)
  - Cough [Unknown]
  - Device issue [Unknown]

NARRATIVE: CASE EVENT DATE: 20220413
